FAERS Safety Report 11100714 (Version 2)
Quarter: 2015Q2

REPORT INFORMATION
  Report Type: Spontaneous
  Country: US (occurrence: US)
  Receive Date: 20150508
  Receipt Date: 20150623
  Transmission Date: 20150821
  Serious: No
  Sender: FDA-Public Use
  Company Number: US-ASTRAZENECA-2015SE40565

PATIENT
  Age: 1078 Month
  Sex: Male
  Weight: 84.8 kg

DRUGS (2)
  1. PRO AIR ALBUTEROL [Concomitant]
     Indication: ASTHMA
     Dosage: AS REQUIRED
     Route: 055
  2. PULMICORT FLEXHALER [Suspect]
     Active Substance: BUDESONIDE
     Indication: HYPERSENSITIVITY
     Dosage: 180 MCG 1 PUFF TWICE DAILY
     Route: 055

REACTIONS (5)
  - Drug dose omission [Unknown]
  - Oral candidiasis [Unknown]
  - Intentional product misuse [Unknown]
  - Lichenification [Unknown]
  - Device defective [Unknown]

NARRATIVE: CASE EVENT DATE: 201411
